FAERS Safety Report 8096804-7 (Version None)
Quarter: 2012Q1

REPORT INFORMATION
  Report Type: 
  Country: None (occurrence: None)
  Receive Date: 20120129
  Receipt Date: 20111202
  Transmission Date: 20120608
  Serious: No
  Sender: FDA-Public Use
  Company Number: US-ABBOTT-11P-163-0880462-00

PATIENT
  Age: 63 Year
  Sex: Female

DRUGS (18)
  1. LISINOPRIL [Concomitant]
     Indication: BLOOD PRESSURE
     Dosage: DAILY
  2. ESTRADIOL [Concomitant]
     Indication: PRODUCT USED FOR UNKNOWN INDICATION
     Dosage: DAILY
  3. FUROSEMIDE [Concomitant]
     Indication: DIURETIC THERAPY
  4. TIMOLOL MALEATE [Concomitant]
     Indication: GLAUCOMA
     Dosage: GF, 1 DROP IN EACH EYE DAILY
  5. VITAMIN E [Concomitant]
     Indication: PRODUCT USED FOR UNKNOWN INDICATION
  6. GLIPIZIDE [Concomitant]
     Indication: DIABETES MELLITUS
     Dosage: XR
  7. POTASSIUM GLUCONATE TAB [Concomitant]
     Indication: PRODUCT USED FOR UNKNOWN INDICATION
  8. NAPROSYN [Concomitant]
     Indication: PRODUCT USED FOR UNKNOWN INDICATION
  9. METFORMIN HCL [Concomitant]
     Indication: DIABETES MELLITUS
  10. METOPROLOL TARTRATE [Concomitant]
     Indication: BLOOD PRESSURE
  11. ONGLYZA [Concomitant]
     Indication: DIABETES MELLITUS
     Dosage: DAILY
  12. LANSOPRAZOLE [Concomitant]
     Indication: PRODUCT USED FOR UNKNOWN INDICATION
     Dosage: DAILY
  13. XALATAN [Concomitant]
     Indication: GLAUCOMA
     Dosage: 1 DROP IN EACH EYE DAILY
  14. HUMIRA [Suspect]
     Indication: ANKYLOSING SPONDYLITIS
     Dates: start: 20111107
  15. AMLODIPINE [Concomitant]
     Indication: BLOOD PRESSURE
     Dosage: DAILY
  16. SIMVASTATIN [Concomitant]
     Indication: BLOOD PRESSURE
     Dosage: DAILY
  17. QVAR 40 [Concomitant]
     Indication: PRODUCT USED FOR UNKNOWN INDICATION
  18. VITAMIN D [Concomitant]
     Indication: PRODUCT USED FOR UNKNOWN INDICATION

REACTIONS (1)
  - INJECTION SITE PAIN [None]
